FAERS Safety Report 20820705 (Version 4)
Quarter: 2023Q1

REPORT INFORMATION
  Report Type: Spontaneous
  Country: US (occurrence: US)
  Receive Date: 20220512
  Receipt Date: 20230206
  Transmission Date: 20230417
  Serious: Yes (Other)
  Sender: FDA-Public Use
  Company Number: US-PFIZER INC-202200419317

PATIENT
  Age: 85 Year
  Sex: Female

DRUGS (2)
  1. XELJANZ [Suspect]
     Active Substance: TOFACITINIB CITRATE
     Indication: Rheumatoid arthritis
     Dosage: 5 MG, 1X/DAY
     Dates: start: 20200318
  2. COVID-19 VACCINE [Concomitant]
     Indication: COVID-19 immunisation
     Dosage: DOSE NUMBER UNKNOWN, SINGLE

REACTIONS (6)
  - Interstitial lung disease [Unknown]
  - Diverticulitis [Unknown]
  - Intentional product misuse [Unknown]
  - Anxiety [Unknown]
  - Epistaxis [Unknown]
  - Increased tendency to bruise [Unknown]
